FAERS Safety Report 6261992-1 (Version None)
Quarter: 2009Q3

REPORT INFORMATION
  Report Type: 
  Country: None (occurrence: None)
  Receive Date: 20090707
  Receipt Date: 20090707
  Transmission Date: 20100115
  Serious: Yes (Other)
  Sender: FDA-Public Use
  Company Number: None

PATIENT
  Age: 65 Year
  Sex: Male
  Weight: 72.5755 kg

DRUGS (1)
  1. SIMCOR [Suspect]
     Indication: BLOOD CHOLESTEROL INCREASED
     Dosage: ONE 1 A DAY PO
     Route: 048
     Dates: start: 20090527, end: 20090622

REACTIONS (8)
  - BURNING SENSATION [None]
  - EYE IRRITATION [None]
  - FLUSHING [None]
  - PAIN IN EXTREMITY [None]
  - PARAESTHESIA [None]
  - PRURITUS [None]
  - THROAT IRRITATION [None]
  - TREMOR [None]
